FAERS Safety Report 7288708-4 (Version None)
Quarter: 2011Q1

REPORT INFORMATION
  Report Type: 
  Country: None (occurrence: None)
  Receive Date: 20110211
  Receipt Date: 20110201
  Transmission Date: 20110831
  Serious: Yes (Hospitalization)
  Sender: FDA-Public Use
  Company Number: PHHY2011JP06264

PATIENT
  Sex: Female

DRUGS (13)
  1. AFINITOR [Suspect]
     Indication: RENAL CELL CARCINOMA
     Dosage: 10 MG, DAILY
     Route: 048
     Dates: start: 20101126
  2. PREDONINE [Concomitant]
     Indication: ADRENAL INSUFFICIENCY
     Dosage: 7.5 MG, UNK
     Route: 048
     Dates: start: 20101126
  3. SORAFENIB TOSILATE [Concomitant]
     Indication: METASTATIC RENAL CELL CARCINOMA
     Dosage: 400 MG, UNK
     Route: 048
     Dates: start: 20091209, end: 20100519
  4. OXYCONTIN [Concomitant]
     Indication: METASTATIC RENAL CELL CARCINOMA
     Dosage: 20 MG, UNK
     Route: 048
     Dates: start: 20101126
  5. URSO 250 [Concomitant]
     Dosage: 300 MG, UNK
     Route: 048
     Dates: start: 20101126
  6. LOXONIN [Concomitant]
     Indication: METASTATIC RENAL CELL CARCINOMA
     Dosage: 180 MG, UNK
     Route: 048
     Dates: start: 20101126
  7. DEPAS [Concomitant]
     Indication: INSOMNIA
     Dosage: 1 MG, UNK
     Route: 048
     Dates: start: 20101126
  8. FOLIAMIN [Concomitant]
     Indication: ANAEMIA
     Dosage: 10 MG, UNK
     Route: 048
     Dates: start: 20101126
  9. PRIMPERAN TAB [Concomitant]
     Indication: METASTATIC RENAL CELL CARCINOMA
     Dosage: 15 MG, UNK
     Route: 048
     Dates: start: 20101126, end: 20101128
  10. SUNITINIB MALATE [Concomitant]
     Indication: METASTATIC RENAL CELL CARCINOMA
     Dosage: 50 MG, UNK
     Route: 048
     Dates: start: 20100618, end: 20101117
  11. RHYTHMY [Concomitant]
     Indication: INSOMNIA
     Dosage: 1 MG, UNK
     Route: 048
     Dates: start: 20101126
  12. ARTIST [Concomitant]
     Indication: HYPERTENSION
     Dosage: 5 MG, UNK
     Route: 048
     Dates: start: 20101126
  13. GASTER [Concomitant]
     Dosage: 20 MG, UNK
     Route: 048
     Dates: start: 20101126

REACTIONS (2)
  - DYSPNOEA [None]
  - GASTROINTESTINAL PERFORATION [None]
